FAERS Safety Report 8785910 (Version 2)
Quarter: 2013Q1

REPORT INFORMATION
  Report Type: Spontaneous
  Country: PR (occurrence: PR)
  Receive Date: 20120914
  Receipt Date: 20130312
  Transmission Date: 20140127
  Serious: Yes (Hospitalization)
  Sender: FDA-Public Use
  Company Number: PR-ABBOTT-12P-131-0978428-00

PATIENT
  Age: 46 None
  Sex: Female
  Weight: 69.92 kg

DRUGS (2)
  1. HUMIRA [Suspect]
     Indication: RHEUMATOID ARTHRITIS
     Route: 058
     Dates: start: 20120530, end: 201208
  2. HUMIRA [Suspect]
     Route: 058
     Dates: start: 201210

REACTIONS (3)
  - Uterine polyp [Recovered/Resolved]
  - Abdominal pain [Recovered/Resolved]
  - Haemoglobin decreased [Recovering/Resolving]
